FAERS Safety Report 8936301 (Version 3)
Quarter: 2013Q1

REPORT INFORMATION
  Report Type: Spontaneous
  Country: US (occurrence: US)
  Receive Date: 20121130
  Receipt Date: 20130103
  Transmission Date: 20140127
  Serious: No
  Sender: FDA-Public Use
  Company Number: US-009507513-1211USA010114

PATIENT
  Age: 65 Year
  Sex: Male

DRUGS (3)
  1. VICTRELIS [Suspect]
     Indication: HEPATITIS C
     Dosage: 800 MG, TID
     Route: 048
     Dates: start: 20120627
  2. PEGASYS [Suspect]
  3. RIBAVIRIN [Suspect]
     Route: 048

REACTIONS (8)
  - Mood swings [Unknown]
  - Asthenia [Unknown]
  - Insomnia [Unknown]
  - Energy increased [Unknown]
  - Haemoglobin decreased [Unknown]
  - Influenza like illness [Unknown]
  - Hyperhidrosis [Unknown]
  - Pain [Unknown]
